FAERS Safety Report 20082086 (Version 4)
Quarter: 2022Q1

REPORT INFORMATION
  Report Type: Spontaneous
  Country: JP (occurrence: JP)
  Receive Date: 20211117
  Receipt Date: 20220128
  Transmission Date: 20220423
  Serious: Yes (Death, Life-Threatening, Other)
  Sender: FDA-Public Use
  Company Number: JP-OTSUKA-2021_039417

PATIENT
  Age: 6 Decade
  Sex: Male

DRUGS (1)
  1. REXULTI [Suspect]
     Active Substance: BREXPIPRAZOLE
     Indication: Schizophrenia
     Dosage: 2 MG, QD
     Route: 048
     Dates: start: 20210921, end: 20211029

REACTIONS (2)
  - Pneumonia aspiration [Recovered/Resolved]
  - Death [Fatal]

NARRATIVE: CASE EVENT DATE: 20211009
